FAERS Safety Report 7328335 (Version 3)
Quarter: 2013Q4

REPORT INFORMATION
  Report Type: Spontaneous
  Country: US (occurrence: US)
  Receive Date: 20100323
  Receipt Date: 20131231
  Transmission Date: 20140711
  Serious: Yes (Hospitalization)
  Sender: FDA-Public Use
  Company Number: US-BAYER-201017009NA

PATIENT
  Age: 49 Year
  Sex: Female
  Weight: 68.03 kg

DRUGS (11)
  1. YAZ [Suspect]
     Indication: CONTRACEPTION
     Dosage: UNK
     Route: 048
     Dates: start: 2002, end: 200803
  2. YASMIN [Suspect]
     Indication: CONTRACEPTION
     Dosage: UNK
     Route: 048
     Dates: start: 2002, end: 200803
  3. TOPOMAX [Concomitant]
     Dosage: UNK
     Dates: start: 200711
  4. VENTOLIN INHALER [Concomitant]
     Dosage: UNK
     Dates: start: 2006
  5. ASTELIN [DIPROPHYLLINE] [Concomitant]
     Dosage: UNK
     Dates: start: 2006
  6. FLUTICASONE PROPIONATE [Concomitant]
     Dosage: UNK
     Dates: start: 2006
  7. VITAMIN C [Concomitant]
     Dosage: UNK
     Dates: start: 1995, end: 1999
  8. LEXAPRO [Concomitant]
     Indication: ANXIETY
     Dosage: UNK
     Dates: start: 2005, end: 201003
  9. ADVIL [Concomitant]
  10. PROPOXYPHENE NAPSYLATE W/ACETAMINOPHENE [Concomitant]
     Dosage: 100 MG, UNK
  11. PROPOXYPHENE NAPSYLATE W/ACETAMINOPHENE [Concomitant]
     Dosage: 650 MG, UNK

REACTIONS (7)
  - Pulmonary embolism [Unknown]
  - Deep vein thrombosis [Recovered/Resolved]
  - Thrombosis [Recovered/Resolved]
  - Dyspnoea [Unknown]
  - Oedema peripheral [Recovered/Resolved]
  - Mental disorder [None]
  - Depression [None]
